FAERS Safety Report 5158313-4 (Version None)
Quarter: 2006Q4

REPORT INFORMATION
  Report Type: 
  Country: None (occurrence: None)
  Receive Date: 20061117
  Receipt Date: 20061101
  Transmission Date: 20070319
  Serious: Yes (Death, Other)
  Sender: FDA-Public Use
  Company Number: 2006JP003759

PATIENT
  Age: 39 Year
  Sex: Female

DRUGS (2)
  1. PROGRAF [Suspect]
     Indication: LIVER TRANSPLANT
  2. PREDNISOLONE [Concomitant]

REACTIONS (3)
  - ADULT T-CELL LYMPHOMA/LEUKAEMIA [None]
  - HEPATIC FAILURE [None]
  - TRANSPLANT REJECTION [None]
